FAERS Safety Report 12414208 (Version 1)
Quarter: 2016Q2

REPORT INFORMATION
  Report Type: Spontaneous
  Country: DE (occurrence: DE)
  Receive Date: 20160527
  Receipt Date: 20160527
  Transmission Date: 20160815
  Serious: Yes (Hospitalization)
  Sender: FDA-Public Use
  Company Number: DE-BIOGEN-2016BI00242058

PATIENT
  Age: 46 Year
  Sex: Female
  Weight: 105 kg

DRUGS (2)
  1. FAMPYRA [Suspect]
     Active Substance: DALFAMPRIDINE
     Indication: GAIT DISTURBANCE
     Route: 048
     Dates: start: 201506
  2. CORTISON [Concomitant]
     Active Substance: CORTISONE ACETATE
     Indication: PROPHYLAXIS
     Route: 065
     Dates: start: 20160412

REACTIONS (5)
  - Gait disturbance [Recovered/Resolved]
  - Fatigue [Recovered/Resolved]
  - Prescribed underdose [Not Recovered/Not Resolved]
  - Blood pressure increased [Recovered/Resolved with Sequelae]
  - Vitamin D deficiency [Recovered/Resolved]

NARRATIVE: CASE EVENT DATE: 201506
